FAERS Safety Report 8348424-4 (Version None)
Quarter: 2012Q2

REPORT INFORMATION
  Report Type: 
  Country: None (occurrence: None)
  Receive Date: 20120509
  Receipt Date: 20120504
  Transmission Date: 20120825
  Serious: Yes (Hospitalization)
  Sender: FDA-Public Use
  Company Number: FR-B.I. PHARMACEUTICALS,INC./RIDGEFIELD-2012-FF-00542FF

PATIENT
  Sex: Female

DRUGS (8)
  1. MODOPAR 125 [Concomitant]
     Dosage: 100MG/25MG
  2. TASMAR [Concomitant]
  3. PRAMIPEXOLE DIHYDROCHLORIDE [Suspect]
     Indication: PARKINSON'S DISEASE
     Route: 048
     Dates: start: 20120106, end: 20120108
  4. MODOPAR LP 125 [Concomitant]
     Dosage: 100MG/25MG
  5. MODOPAR 250 [Concomitant]
     Dosage: 200MG/50MG
  6. REQUIP [Concomitant]
  7. MODOPAR 62.5 [Concomitant]
     Dosage: 50MG/12.5MG
  8. AZILECT [Concomitant]

REACTIONS (2)
  - PHYSICAL ASSAULT [None]
  - DELUSION [None]
